FAERS Safety Report 5923950-3 (Version None)
Quarter: 2008Q3

REPORT INFORMATION
  Report Type: 
  Country: None (occurrence: None)
  Receive Date: 20080909
  Receipt Date: 20080428
  Transmission Date: 20090109
  Serious: Yes (Hospitalization)
  Sender: FDA-Public Use
  Company Number: 163-20785-08041008

PATIENT
  Age: 54 Year
  Sex: Female
  Weight: 81 kg

DRUGS (25)
  1. THALOMID [Suspect]
     Indication: MULTIPLE MYELOMA
     Dosage: 100 MG, ORAL ; 200 MG, ORAL
     Route: 048
     Dates: start: 20050116
  2. DEXAMETHASONE TAB [Suspect]
     Indication: MULTIPLE MYELOMA
     Dosage: 40 MG ; 20 MG
     Dates: start: 20050116
  3. VELCADE [Suspect]
     Indication: MULTIPLE MYELOMA
     Dosage: 1 MG/M2 ; 1 MG/M2
     Dates: end: 20070112
  4. VELCADE [Suspect]
     Indication: MULTIPLE MYELOMA
     Dosage: 1 MG/M2 ; 1 MG/M2
     Dates: start: 20050112
  5. ADRIAMYCIN PFS [Suspect]
     Indication: MULTIPLE MYELOMA
     Dosage: 7.5 MG/M2 ; 10 MG/M2
     Dates: end: 20051120
  6. ADRIAMYCIN PFS [Suspect]
     Indication: MULTIPLE MYELOMA
     Dosage: 7.5 MG/M2 ; 10 MG/M2
     Dates: start: 20050116
  7. CYCLOPHOSPHAMIDE [Suspect]
     Indication: MULTIPLE MYELOMA
     Dosage: 300 MG/M2 ; 400 MG/M2
     Dates: end: 20051120
  8. CYCLOPHOSPHAMIDE [Suspect]
     Indication: MULTIPLE MYELOMA
     Dosage: 300 MG/M2 ; 400 MG/M2
     Dates: start: 20050116
  9. ETOPOSIDE [Suspect]
     Indication: MULTIPLE MYELOMA
     Dosage: 30 MG/M2 ; 40 MG/M2
     Dates: end: 20051120
  10. ETOPOSIDE [Suspect]
     Indication: MULTIPLE MYELOMA
     Dosage: 30 MG/M2 ; 40 MG/M2
     Dates: start: 20050116
  11. MELPHALAN (MELPHALAN) [Suspect]
     Indication: MULTIPLE MYELOMA
     Dosage: 200 MG/M2 ; 200 MG/M2
     Dates: start: 20050329, end: 20050329
  12. MELPHALAN (MELPHALAN) [Suspect]
     Indication: MULTIPLE MYELOMA
     Dosage: 200 MG/M2 ; 200 MG/M2
     Dates: start: 20050607, end: 20050607
  13. CISPLATIN [Suspect]
     Indication: MULTIPLE MYELOMA
     Dosage: 7.5 MG/M2 ; 10 MG/M2
     Dates: end: 20051120
  14. CISPLATIN [Suspect]
     Indication: MULTIPLE MYELOMA
     Dosage: 7.5 MG/M2 ; 10 MG/M2
     Dates: start: 20050116
  15. PROTONIX [Concomitant]
  16. SYNTHROID (LEVOTHYROXINE SODIUM) (TABLETS) [Concomitant]
  17. WELLBUTRIN SR [Concomitant]
  18. SPIRONOLACTONE [Concomitant]
  19. ATIVAN [Concomitant]
  20. LEXAPRO [Concomitant]
  21. ARIXTRA [Concomitant]
  22. LEVAQUIN [Concomitant]
  23. FLAGYL [Concomitant]
  24. TRIAMCINOLONE ACETONIDE (TRIAMCINOLONE ACETONIDE) (CREAM) [Concomitant]
  25. HALCION (TRIAZOLAM) ( TABLETS) [Concomitant]

REACTIONS (3)
  - ABDOMINAL PAIN [None]
  - CONSTIPATION [None]
  - UROSEPSIS [None]
